FAERS Safety Report 7806829-1 (Version None)
Quarter: 2011Q4

REPORT INFORMATION
  Report Type: 
  Country: None (occurrence: None)
  Receive Date: 20111011
  Receipt Date: 20111004
  Transmission Date: 20120403
  Serious: Yes (Death, Hospitalization, Other)
  Sender: FDA-Public Use
  Company Number: JP-PFIZER INC-2011228846

PATIENT
  Age: 78 Year
  Sex: Male
  Weight: 42 kg

DRUGS (3)
  1. ATORVASTATIN CALCIUM [Suspect]
     Indication: HYPERCHOLESTEROLAEMIA
     Dosage: 10 MG, 1X/DAY
     Route: 048
     Dates: start: 20101201, end: 20110404
  2. WARFARIN [Concomitant]
     Dosage: UNK
     Dates: end: 20110327
  3. LASIX [Concomitant]
     Dosage: UNK
     Dates: end: 20110327

REACTIONS (1)
  - MYOCARDIAL INFARCTION [None]
